FAERS Safety Report 21307920 (Version 5)
Quarter: 2023Q2

REPORT INFORMATION
  Report Type: Report from Study
  Country: US (occurrence: US)
  Receive Date: 20220908
  Receipt Date: 20230501
  Transmission Date: 20230722
  Serious: Yes (Other)
  Sender: FDA-Public Use
  Company Number: US-ABBVIE-22K-163-4531753-00

PATIENT
  Age: 53 Year
  Sex: Male

DRUGS (2)
  1. RINVOQ [Suspect]
     Active Substance: UPADACITINIB
     Indication: Rheumatoid arthritis
     Route: 048
     Dates: start: 20190920
  2. RINVOQ [Suspect]
     Active Substance: UPADACITINIB
     Indication: Rheumatoid arthritis
     Route: 048

REACTIONS (7)
  - Limb operation [Not Recovered/Not Resolved]
  - Surgery [Unknown]
  - Grip strength decreased [Not Recovered/Not Resolved]
  - Post procedural complication [Not Recovered/Not Resolved]
  - Hypoaesthesia [Not Recovered/Not Resolved]
  - Limb operation [Recovering/Resolving]
  - Monoplegia [Not Recovered/Not Resolved]

NARRATIVE: CASE EVENT DATE: 20220805
